FAERS Safety Report 14305702 (Version 1)
Quarter: 2017Q4

REPORT INFORMATION
  Report Type: Spontaneous
  Country: US (occurrence: US)
  Receive Date: 20171219
  Receipt Date: 20171219
  Transmission Date: 20180321
  Serious: Yes (Other)
  Sender: FDA-Public Use
  Company Number: PHHY2017US181198

PATIENT
  Age: 84 Year
  Sex: Male

DRUGS (1)
  1. MIDODRINE [Suspect]
     Active Substance: MIDODRINE
     Indication: HYPOTENSION
     Dosage: UNK
     Route: 065

REACTIONS (3)
  - Dyspnoea at rest [Unknown]
  - Chest pain [Unknown]
  - Stress cardiomyopathy [Unknown]
